FAERS Safety Report 8458862-7 (Version None)
Quarter: 2012Q2

REPORT INFORMATION
  Report Type: 
  Country: None (occurrence: None)
  Receive Date: 20120622
  Receipt Date: 20120612
  Transmission Date: 20120825
  Serious: Yes (Other)
  Sender: FDA-Public Use
  Company Number: US-ELI_LILLY_AND_COMPANY-US201206004550

PATIENT
  Sex: Female

DRUGS (1)
  1. CYMBALTA [Suspect]

REACTIONS (19)
  - VENTRICULAR EXTRASYSTOLES [None]
  - VOMITING [None]
  - MENTAL IMPAIRMENT [None]
  - HEADACHE [None]
  - ANGER [None]
  - DISSOCIATION [None]
  - MOOD SWINGS [None]
  - DIZZINESS [None]
  - PARANOIA [None]
  - SUICIDAL IDEATION [None]
  - INFLUENZA LIKE ILLNESS [None]
  - SUICIDE ATTEMPT [None]
  - DRUG WITHDRAWAL SYNDROME [None]
  - ARTHRALGIA [None]
  - NAUSEA [None]
  - PARAESTHESIA [None]
  - INSOMNIA [None]
  - MYALGIA [None]
  - NIGHTMARE [None]
